FAERS Safety Report 25596018 (Version 1)
Quarter: 2025Q3

REPORT INFORMATION
  Report Type: Spontaneous
  Country: US (occurrence: None)
  Receive Date: 20250722
  Receipt Date: 20250722
  Transmission Date: 20251020
  Serious: Yes (Hospitalization)
  Sender: FDA-CTU
  Company Number: None

PATIENT
  Age: 33 Year
  Sex: Female
  Weight: 110 kg

DRUGS (1)
  1. MOUNJARO [Suspect]
     Active Substance: TIRZEPATIDE
     Indication: Diabetes mellitus

REACTIONS (5)
  - Abdominal pain [None]
  - Alanine aminotransferase increased [None]
  - Aspartate aminotransferase increased [None]
  - Lipase increased [None]
  - Serum ferritin increased [None]

NARRATIVE: CASE EVENT DATE: 20250716
